FAERS Safety Report 5912067-X (Version None)
Quarter: 2008Q4

REPORT INFORMATION
  Report Type: 
  Country: None (occurrence: None)
  Receive Date: 20081003
  Receipt Date: 20081003
  Transmission Date: 20090506
  Serious: No
  Sender: FDA-Public Use
  Company Number: None

PATIENT
  Age: 41 Year
  Sex: Male
  Weight: 83.9154 kg

DRUGS (1)
  1. LEVAQUIN [Suspect]
     Dosage: 500MG ONCE A DAY PO
     Route: 048

REACTIONS (15)
  - ANXIETY [None]
  - ASTHENIA [None]
  - BALANCE DISORDER [None]
  - FATIGUE [None]
  - GASTROINTESTINAL DISORDER [None]
  - INSOMNIA [None]
  - NERVOUS SYSTEM DISORDER [None]
  - NEUROPATHY PERIPHERAL [None]
  - NIGHTMARE [None]
  - PAIN [None]
  - PANIC ATTACK [None]
  - SUICIDAL IDEATION [None]
  - TENDONITIS [None]
  - TINNITUS [None]
  - VISUAL IMPAIRMENT [None]
